FAERS Safety Report 12090881 (Version 1)
Quarter: 2016Q1

REPORT INFORMATION
  Report Type: Spontaneous
  Country: FR (occurrence: FR)
  Receive Date: 20160218
  Receipt Date: 20160218
  Transmission Date: 20160526
  Serious: Yes (Hospitalization)
  Sender: FDA-Public Use
  Company Number: FR-ABBVIE-16P-056-1563640-00

PATIENT
  Age: 42 Year
  Sex: Female

DRUGS (3)
  1. DEPAKINE CHRONO [Suspect]
     Active Substance: VALPROATE SODIUM
     Indication: IDIOPATHIC GENERALISED EPILEPSY
     Dosage: EXTENDED RELEASE
     Route: 048
     Dates: start: 1999
  2. LAMICTAL [Suspect]
     Active Substance: LAMOTRIGINE
     Route: 065
     Dates: start: 20151207, end: 20151214
  3. LAMICTAL [Suspect]
     Active Substance: LAMOTRIGINE
     Indication: IDIOPATHIC GENERALISED EPILEPSY
     Route: 048
     Dates: start: 20151214, end: 20151220

REACTIONS (6)
  - Hepatitis cholestatic [Recovered/Resolved]
  - Pleural effusion [Recovered/Resolved]
  - Lymphoplasia [Recovered/Resolved]
  - Hepatitis [Recovering/Resolving]
  - Interstitial lung disease [Recovered/Resolved]
  - Thrombocytopenia [Recovered/Resolved]

NARRATIVE: CASE EVENT DATE: 20151219
